FAERS Safety Report 8355800-2 (Version None)
Quarter: 2012Q2

REPORT INFORMATION
  Report Type: 
  Country: None (occurrence: None)
  Receive Date: 20120514
  Receipt Date: 20120509
  Transmission Date: 20120825
  Serious: Yes (Other)
  Sender: FDA-Public Use
  Company Number: US-PFIZER INC-2008013246

PATIENT
  Sex: Male
  Weight: 94.331 kg

DRUGS (9)
  1. CHANTIX [Suspect]
     Dosage: 1 MG, 1X/DAY
     Route: 048
     Dates: start: 20120322, end: 20120402
  2. ZYRTEC [Concomitant]
     Dosage: 10 MG, 1X/DAY
  3. CHANTIX [Suspect]
     Indication: SMOKING CESSATION THERAPY
     Dosage: UNK
     Route: 048
     Dates: start: 20080101, end: 20080206
  4. LORTAB [Concomitant]
     Indication: PAIN
     Dosage: ^50MG^, 3X/DAY
  5. CHANTIX [Suspect]
     Dosage: UNK
     Route: 048
     Dates: start: 20081101, end: 20090101
  6. HYDROCODONE BITARTRATE AND ACETAMINOPHEN [Concomitant]
     Dosage: 10/325 MG Q8 PRN
  7. CHANTIX [Suspect]
     Dosage: 0.5 MG, DAILY
     Route: 048
     Dates: start: 20081101, end: 20081101
  8. SEROQUEL [Concomitant]
     Dosage: 300 MG QHS
  9. DIAZEPAM [Concomitant]
     Dosage: 10 MG, Q8 PRN

REACTIONS (13)
  - ANXIETY [None]
  - ANGER [None]
  - DRUG TOLERANCE DECREASED [None]
  - DEPRESSION [None]
  - SLEEP DISORDER [None]
  - FEELING JITTERY [None]
  - MIGRAINE [None]
  - DISTURBANCE IN ATTENTION [None]
  - FEAR [None]
  - MOOD SWINGS [None]
  - INSOMNIA [None]
  - DYSPNOEA [None]
  - SWELLING FACE [None]
